FAERS Safety Report 5080805-7 (Version None)
Quarter: 2006Q3

REPORT INFORMATION
  Report Type: 
  Country: None (occurrence: None)
  Receive Date: 20060809
  Receipt Date: 20060801
  Transmission Date: 20061208
  Serious: Yes (Other)
  Sender: FDA-Public Use
  Company Number: ESWYE481102AUG06

PATIENT
  Age: 36 Year
  Sex: Female

DRUGS (2)
  1. DOBUPAL (VENLAFAXINE HYDROCHLORIDE, TABLET, 0) [Suspect]
     Indication: OBSESSIVE-COMPULSIVE DISORDER
     Dosage: 75 MG 2X PER 1 DAY ORAL
     Route: 048
     Dates: start: 20060425
  2. AREMIS (SERTRALINE HYDROCHLORIDE, , 0) [Suspect]
     Indication: OBSESSIVE-COMPULSIVE DISORDER
     Dosage: 100 MG 2X PER 1 DAY ORAL
     Route: 048
     Dates: start: 20050616, end: 20060424

REACTIONS (4)
  - BLOOD ANDROSTENEDIONE INCREASED [None]
  - BLOOD PROLACTIN INCREASED [None]
  - HYPERTRICHOSIS [None]
  - WEIGHT INCREASED [None]
